FAERS Safety Report 5763769-X (Version None)
Quarter: 2008Q2

REPORT INFORMATION
  Report Type: 
  Country: None (occurrence: None)
  Receive Date: 20080606
  Receipt Date: 20080606
  Transmission Date: 20081010
  Serious: Yes (Death)
  Sender: FDA-Public Use
  Company Number: None

PATIENT
  Age: 35 Year
  Sex: Male
  Weight: 106.5953 kg

DRUGS (2)
  1. DIGITEK, 0.25 MG + 0.125 MG [Suspect]
     Indication: TRANSPOSITION OF THE GREAT VESSELS
     Dosage: 0.25 MG 1 TAB DAILY
     Dates: start: 20060101, end: 20080416
  2. DIGITEK [Suspect]
     Indication: TRANSPOSITION OF THE GREAT VESSELS
     Dosage: 0.125 MG 1 TAB DAILY
     Dates: start: 20060101, end: 20080416

REACTIONS (1)
  - DEATH [None]
